FAERS Safety Report 5031131-3 (Version None)
Quarter: 2006Q2

REPORT INFORMATION
  Report Type: 
  Country: None (occurrence: None)
  Receive Date: 20060508
  Receipt Date: 20050314
  Transmission Date: 20061013
  Serious: Yes (Other)
  Sender: FDA-Public Use
  Company Number: 230037M05USA

PATIENT
  Age: 32 Year
  Sex: Female

DRUGS (6)
  1. REBIF [Suspect]
     Indication: MULTIPLE SCLEROSIS
     Dosage: SEE IMAGE
     Dates: start: 20041019, end: 20050210
  2. REBIF [Suspect]
     Indication: MULTIPLE SCLEROSIS
     Dosage: SEE IMAGE
     Dates: start: 20050210
  3. CELEXA [Concomitant]
  4. ACIPHEX [Concomitant]
  5. STEROID (CORTICOSTEROID NOS) [Concomitant]
  6. LEVONORGESTREL [Concomitant]

REACTIONS (1)
  - HEPATIC ENZYME INCREASED [None]
